FAERS Safety Report 4656986-3 (Version None)
Quarter: 2005Q2

REPORT INFORMATION
  Report Type: 
  Country: None (occurrence: None)
  Receive Date: 20050506
  Receipt Date: 20050425
  Transmission Date: 20051028
  Serious: Yes (Hospitalization)
  Sender: FDA-Public Use
  Company Number: 2005064173

PATIENT
  Sex: Male

DRUGS (3)
  1. CELEBREX [Suspect]
     Indication: ILL-DEFINED DISORDER
     Dosage: 200 MG
  2. NIFEDIPINE [Concomitant]
  3. ATORVASTATIN CALCIUM [Concomitant]

REACTIONS (1)
  - ISCHAEMIC CEREBRAL INFARCTION [None]
